FAERS Safety Report 23292859 (Version 1)
Quarter: 2023Q4

REPORT INFORMATION
  Report Type: Spontaneous
  Country: CN (occurrence: CN)
  Receive Date: 20231213
  Receipt Date: 20231213
  Transmission Date: 20240110
  Serious: Yes (Hospitalization)
  Sender: FDA-Public Use
  Company Number: CN-SA-SAC20231211000513

PATIENT
  Age: 67 Year
  Sex: Male
  Weight: 61 kg

DRUGS (3)
  1. CLOPIDOGREL BISULFATE [Suspect]
     Active Substance: CLOPIDOGREL BISULFATE
     Indication: Embolism arterial
     Dosage: 75MG, QD
     Route: 048
     Dates: start: 20231115, end: 20231118
  2. ASPIRIN [Suspect]
     Active Substance: ASPIRIN
     Indication: Embolism arterial
     Dosage: 100MG, QD
     Route: 048
     Dates: start: 20231115, end: 20231118
  3. ENOXAPARIN SODIUM [Suspect]
     Active Substance: ENOXAPARIN SODIUM
     Indication: Embolism arterial
     Dosage: 6000IU,QD
     Route: 041
     Dates: start: 20231118, end: 20231205

REACTIONS (1)
  - Haematoma [Recovering/Resolving]

NARRATIVE: CASE EVENT DATE: 20231126
